FAERS Safety Report 9943599 (Version 2)
Quarter: 2014Q1

REPORT INFORMATION
  Report Type: Report from Study
  Country: US (occurrence: US)
  Receive Date: 20140303
  Receipt Date: 20140303
  Transmission Date: 20141002
  Serious: No
  Sender: FDA-Public Use
  Company Number: US-ABBVIE-13P-163-1032671-00

PATIENT
  Age: 52 Year
  Sex: Female

DRUGS (13)
  1. HUMIRA [Suspect]
     Indication: CROHN^S DISEASE
     Dosage: LOADING DOSE
     Route: 058
     Dates: start: 20121221, end: 20121221
  2. HUMIRA [Suspect]
     Route: 058
     Dates: start: 20130104, end: 20130104
  3. HUMIRA [Suspect]
     Route: 058
     Dates: start: 20130118, end: 20130118
  4. HUMIRA [Suspect]
     Route: 058
  5. FOLIC ACID [Concomitant]
     Indication: VITAMIN SUPPLEMENTATION
  6. KCL/MICRO K [Concomitant]
     Indication: PRODUCT USED FOR UNKNOWN INDICATION
  7. FERROUS SULFATE [Concomitant]
     Indication: ANAEMIA
  8. VITAMIN D [Concomitant]
     Indication: VITAMIN D DECREASED
     Dosage: 1 IN 1 WK X 8 WKS
  9. LISINOPRIL/HCTZ [Concomitant]
     Indication: HYPERTENSION
     Dosage: 20/25 MG
  10. ZOFRAN [Concomitant]
     Indication: NAUSEA
     Dosage: 1 IN 4 HRS, AS REQUIRED
  11. AMBIEN [Concomitant]
     Indication: INSOMNIA
  12. ESTRADIOL [Concomitant]
     Indication: HORMONE REPLACEMENT THERAPY
  13. HYDROCODONE [Concomitant]
     Indication: BACK PAIN
     Dosage: 2 IN 1 D, AS REQUIRED

REACTIONS (4)
  - Incorrect dose administered [Unknown]
  - Abdominal pain upper [Not Recovered/Not Resolved]
  - Faecal incontinence [Not Recovered/Not Resolved]
  - Diarrhoea [Not Recovered/Not Resolved]
